FAERS Safety Report 8460496-5 (Version None)
Quarter: 2012Q2

REPORT INFORMATION
  Report Type: 
  Country: None (occurrence: None)
  Receive Date: 20120622
  Receipt Date: 20120613
  Transmission Date: 20120825
  Serious: Yes (Hospitalization)
  Sender: FDA-Public Use
  Company Number: BR-ASTRAZENECA-2012SE40030

PATIENT
  Age: 76 Year
  Sex: Female

DRUGS (5)
  1. METOPROLOL SUCCINATE [Suspect]
     Route: 048
  2. BRILINTA [Suspect]
     Indication: CORONARY ARTERY OCCLUSION
     Route: 048
     Dates: start: 20120401
  3. METOPROLOL SUCCINATE [Suspect]
     Route: 048
     Dates: start: 20120301, end: 20120401
  4. DIOVAN [Concomitant]
  5. LIPITOR [Concomitant]
     Route: 048

REACTIONS (2)
  - CORONARY ARTERY OCCLUSION [None]
  - INTENTIONAL DRUG MISUSE [None]
